FAERS Safety Report 10053060 (Version 1)
Quarter: 2014Q2

REPORT INFORMATION
  Report Type: Spontaneous
  Country: GB (occurrence: GB)
  Receive Date: 20140402
  Receipt Date: 20140402
  Transmission Date: 20141212
  Serious: Yes (Other)
  Sender: FDA-Public Use
  Company Number: GB-ACTAVIS-2014-05925

PATIENT
  Sex: Male

DRUGS (2)
  1. DOCETAXEL (UNKNOWN) [Suspect]
     Indication: PRODUCT USED FOR UNKNOWN INDICATION
     Dosage: UNK, CYCLICAL (4 CYCLES)
     Route: 065
  2. ZOLADEX                            /00732102/ [Concomitant]
     Indication: PROSTATE CANCER
     Dosage: 10.8 MG, UNK
     Route: 058
     Dates: start: 201010

REACTIONS (1)
  - Malignant neoplasm progression [Not Recovered/Not Resolved]
